FAERS Safety Report 9303731 (Version 1)
Quarter: 2013Q2

REPORT INFORMATION
  Report Type: Spontaneous
  Country: US (occurrence: None)
  Receive Date: 20130516
  Receipt Date: 20130516
  Transmission Date: 20140414
  Serious: Yes (Other)
  Sender: FDA-Public Use
  Company Number: SYM-2013-03683

PATIENT
  Sex: Female

DRUGS (1)
  1. PURPOSE DUAL TREATMENT MOISTURE SUNSCREEN SPF 15 [Suspect]
     Indication: PRODUCT USED FOR UNKNOWN INDICATION
     Route: 061

REACTIONS (1)
  - Basal cell carcinoma [None]
